FAERS Safety Report 8762442 (Version 2)
Quarter: 2013Q4

REPORT INFORMATION
  Report Type: Spontaneous
  Country: US (occurrence: US)
  Receive Date: 20120830
  Receipt Date: 20131108
  Transmission Date: 20140711
  Serious: No
  Sender: FDA-Public Use
  Company Number: US-PFIZER INC-2012212640

PATIENT
  Age: 37 Year
  Sex: Female
  Weight: 113.38 kg

DRUGS (4)
  1. LYRICA [Suspect]
     Indication: FIBROMYALGIA
     Dosage: 150 MG, 2X/DAY
     Route: 048
     Dates: start: 2005
  2. TYLENOL [Concomitant]
     Indication: BACK PAIN
     Dosage: 1100 MG, AS NEEDED
     Route: 048
  3. TYLENOL [Concomitant]
     Indication: HEADACHE
  4. AMBIEN [Concomitant]
     Dosage: 10 MG, UNK

REACTIONS (4)
  - Pruritus [Recovered/Resolved]
  - Erythema [Recovered/Resolved]
  - Arthritis [Unknown]
  - Urticaria [Recovered/Resolved]
